FAERS Safety Report 4366065-0 (Version None)
Quarter: 2004Q2

REPORT INFORMATION
  Report Type: 
  Country: None (occurrence: None)
  Receive Date: 20040524
  Receipt Date: 20040210
  Transmission Date: 20050107
  Serious: No
  Sender: FDA-Public Use
  Company Number: SU-2004-002125

PATIENT
  Age: 48 Year
  Sex: Male
  Weight: 112.4921 kg

DRUGS (4)
  1. BENICAR [Suspect]
     Indication: HYPERTENSION
     Dosage: 20 MG QD PO
     Route: 048
     Dates: start: 20040122
  2. ZOCOR [Concomitant]
  3. PROZAC [Concomitant]
  4. KLONOPIN [Concomitant]

REACTIONS (7)
  - ABDOMINAL DISTENSION [None]
  - DIZZINESS [None]
  - FLATULENCE [None]
  - GASTROENTERITIS [None]
  - HEADACHE [None]
  - NAUSEA [None]
  - RENAL DISORDER [None]
